FAERS Safety Report 6274565-1 (Version None)
Quarter: 2009Q4

REPORT INFORMATION
  Report Type: 
  Country: None (occurrence: None)
  Receive Date: 20090716
  Receipt Date: 20090707
  Transmission Date: 20100525
  Serious: Yes (Disabling)
  Sender: FDA-Public Use
  Company Number: APP200900107

PATIENT
  Sex: Female

DRUGS (9)
  1. BUPIVACAINE HYDROCHLORIDE AND EPINEPHRINE [Suspect]
     Indication: ARTHRALGIA
     Dosage: 200 ML, 2 ML HOUR, INTRA-ARTICULAR
     Route: 014
     Dates: start: 20060213
  2. BUPIVACAINE HYDROCHLORIDE AND EPINEPHRINE [Suspect]
     Indication: PROCEDURAL PAIN
     Dosage: 200 ML, 2 ML HOUR, INTRA-ARTICULAR
     Route: 014
     Dates: start: 20060213
  3. BREG PAIN PUMP [Suspect]
     Indication: ARTHRALGIA
     Dates: start: 20060213
  4. BREG PAIN PUMP [Suspect]
     Indication: PROCEDURAL PAIN
     Dates: start: 20060213
  5. ANCEF [Concomitant]
  6. GENTAMICIN [Concomitant]
  7. MORPHINE [Concomitant]
  8. PERCOCET [Concomitant]
  9. DILAUDID [Concomitant]

REACTIONS (2)
  - CHONDROLYSIS [None]
  - MUSCULOSKELETAL PAIN [None]
